FAERS Safety Report 6129394-6 (Version None)
Quarter: 2009Q1

REPORT INFORMATION
  Report Type: 
  Country: None (occurrence: None)
  Receive Date: 20090324
  Receipt Date: 20090310
  Transmission Date: 20090719
  Serious: Yes (Other)
  Sender: FDA-Public Use
  Company Number: US-PFIZER INC-2006102241

PATIENT
  Sex: Female
  Weight: 72.562 kg

DRUGS (4)
  1. PROVERA [Suspect]
     Indication: MENSTRUATION IRREGULAR
     Dosage: 5 MG, UNK
     Route: 048
     Dates: start: 19941001, end: 19991001
  2. PREMARIN [Suspect]
     Indication: MENSTRUATION IRREGULAR
     Dosage: 0.625 MG, UNK
     Route: 065
     Dates: start: 19940901, end: 19991001
  3. CYCRIN [Suspect]
     Indication: MENSTRUATION IRREGULAR
     Dosage: 5 MG, UNK
     Dates: start: 19990101, end: 19990201
  4. MEDROXYPROGESTERONE [Suspect]
     Indication: MENSTRUATION IRREGULAR
     Dosage: 5 MG, UNK
     Dates: start: 19990101

REACTIONS (1)
  - BREAST CANCER [None]
